FAERS Safety Report 6899830-6 (Version None)
Quarter: 2010Q3

REPORT INFORMATION
  Report Type: 
  Country: None (occurrence: None)
  Receive Date: 20100803
  Receipt Date: 20070207
  Transmission Date: 20110219
  Serious: No
  Sender: FDA-Public Use
  Company Number: US-PFIZER INC-2006151135

PATIENT
  Age: 51 Year
  Sex: Male
  Weight: 136.08 kg

DRUGS (11)
  1. LYRICA [Suspect]
     Indication: NEURALGIA
     Route: 048
     Dates: start: 20060918, end: 20061121
  2. LYRICA [Suspect]
     Indication: PROCEDURAL PAIN
  3. PERCOCET [Concomitant]
     Dosage: 10/325 MILLIGRAMS
  4. WELLBUTRIN [Concomitant]
  5. CELEBREX [Concomitant]
  6. METFORMIN HCL [Concomitant]
  7. ACTOS [Concomitant]
  8. CYMBALTA [Concomitant]
  9. ALLEGRA [Concomitant]
  10. MORPHINE [Concomitant]
     Route: 037
  11. NEURONTIN [Concomitant]

REACTIONS (4)
  - DEPRESSION [None]
  - DRUG INEFFECTIVE [None]
  - INSOMNIA [None]
  - PAIN [None]
